FAERS Safety Report 6804419-0 (Version None)
Quarter: 2010Q2

REPORT INFORMATION
  Report Type: 
  Country: None (occurrence: None)
  Receive Date: 20100628
  Receipt Date: 20070501
  Transmission Date: 20101027
  Serious: No
  Sender: FDA-Public Use
  Company Number: US-PFIZER INC-2007017656

PATIENT
  Sex: Female
  Weight: 65.77 kg

DRUGS (3)
  1. PROCARDIA XL [Suspect]
     Indication: HYPERTENSION
     Dates: start: 20020101, end: 20070223
  2. SYNTHROID [Concomitant]
  3. ATENOLOL [Concomitant]

REACTIONS (1)
  - JOINT SWELLING [None]
